FAERS Safety Report 6094901-9 (Version None)
Quarter: 2009Q1

REPORT INFORMATION
  Report Type: 
  Country: None (occurrence: None)
  Receive Date: 20090223
  Receipt Date: 20080818
  Transmission Date: 20090719
  Serious: Yes (Disabling)
  Sender: FDA-Public Use
  Company Number: WAES 0808USA03174

PATIENT
  Age: 30 Year
  Sex: Male

DRUGS (2)
  1. PROPECIA [Suspect]
     Indication: ALOPECIA
     Dosage: 1 MG/DAILY/PO
     Route: 048
     Dates: start: 20070726, end: 20080708
  2. LAMICTAL [Concomitant]

REACTIONS (3)
  - LIBIDO DECREASED [None]
  - LOSS OF LIBIDO [None]
  - SEXUAL DYSFUNCTION [None]
